FAERS Safety Report 9557316 (Version 1)
Quarter: 2013Q3

REPORT INFORMATION
  Report Type: Spontaneous
  Country: US (occurrence: None)
  Receive Date: 20130724
  Receipt Date: 20130724
  Transmission Date: 20140515
  Serious: Yes (Other)
  Sender: FDA-Public Use
  Company Number: PHEH2013US006915

PATIENT
  Age: 45 Year
  Sex: Female

DRUGS (2)
  1. GILENYA [Suspect]
     Indication: MULTIPLE SCLEROSIS
     Route: 048
     Dates: start: 20130304, end: 20130321
  2. STEROIDS NOS (NO INGREDIENTS/SUBSTANCES) [Concomitant]

REACTIONS (4)
  - Feeling cold [None]
  - Hypoaesthesia [None]
  - Paraesthesia [None]
  - Hypertension [None]
